FAERS Safety Report 7449962-9 (Version None)
Quarter: 2011Q2

REPORT INFORMATION
  Report Type: 
  Country: None (occurrence: None)
  Receive Date: 20110428
  Receipt Date: 20110428
  Transmission Date: 20111010
  Serious: Yes (Hospitalization)
  Sender: FDA-Public Use
  Company Number: None

PATIENT
  Sex: Female
  Weight: 55.9 kg

DRUGS (1)
  1. CISPLATIN [Suspect]
     Dosage: 64 MG

REACTIONS (4)
  - NORMOCHROMIC NORMOCYTIC ANAEMIA [None]
  - LYMPHOCELE [None]
  - GROIN PAIN [None]
  - DEEP VEIN THROMBOSIS [None]
